FAERS Safety Report 4873713-5 (Version None)
Quarter: 2006Q1

REPORT INFORMATION
  Report Type: 
  Country: None (occurrence: None)
  Receive Date: 20060104
  Receipt Date: 20060104
  Transmission Date: 20060701
  Serious: Yes (Life-Threatening)
  Sender: FDA-Public Use
  Company Number: None

PATIENT
  Age: 50 Year
  Sex: Female
  Weight: 19.0511 kg

DRUGS (2)
  1. ANGIOMAX [Suspect]
     Indication: HEPARIN-INDUCED THROMBOCYTOPENIA
     Dosage: ADJUST PER APT
     Dates: start: 20050604, end: 20050608
  2. ANGIOMAX [Suspect]
     Indication: ISCHAEMIA
     Dosage: ADJUST PER APT
     Dates: start: 20050604, end: 20050608

REACTIONS (1)
  - GASTROINTESTINAL HAEMORRHAGE [None]
